FAERS Safety Report 20556984 (Version 1)
Quarter: 2022Q1

REPORT INFORMATION
  Report Type: Spontaneous
  Country: US (occurrence: US)
  Receive Date: 20220307
  Receipt Date: 20220307
  Transmission Date: 20220424
  Serious: Yes (Death, Hospitalization, Other)
  Sender: FDA-Public Use
  Company Number: US-CIPLA LTD.-2022US01465

PATIENT

DRUGS (1)
  1. HYDRALAZINE [Suspect]
     Active Substance: HYDRALAZINE HYDROCHLORIDE
     Indication: Hypertension
     Dosage: UNK, FOR 10 YEARS
     Route: 065

REACTIONS (3)
  - Pulmonary alveolar haemorrhage [Fatal]
  - Anti-neutrophil cytoplasmic antibody positive vasculitis [Unknown]
  - Glomerulonephritis [Unknown]
